FAERS Safety Report 20203116 (Version 8)
Quarter: 2022Q2

REPORT INFORMATION
  Report Type: Spontaneous
  Country: GB (occurrence: GB)
  Receive Date: 20211218
  Receipt Date: 20220506
  Transmission Date: 20220720
  Serious: Yes (Death, Life-Threatening, Hospitalization, Disabling, Other)
  Sender: FDA-Public Use
  Company Number: None

PATIENT
  Age: 76 Year
  Sex: Male
  Weight: 69 kg

DRUGS (52)
  1. OMEPRAZOLE [Interacting]
     Active Substance: OMEPRAZOLE
     Indication: Duodenal ulcer
     Route: 048
  2. OMEPRAZOLE [Interacting]
     Active Substance: OMEPRAZOLE
     Dosage: 20 MILLIGRAM, QD, MORNING
     Route: 048
  3. CLARITHROMYCIN [Interacting]
     Active Substance: CLARITHROMYCIN
     Indication: Lower respiratory tract infection
     Route: 042
     Dates: start: 20180127, end: 20180131
  4. CLARITHROMYCIN [Interacting]
     Active Substance: CLARITHROMYCIN
     Indication: Pneumonia
     Route: 065
  5. CLARITHROMYCIN [Interacting]
     Active Substance: CLARITHROMYCIN
     Indication: Mediastinitis
  6. TACROLIMUS [Interacting]
     Active Substance: TACROLIMUS
     Indication: Prophylaxis against transplant rejection
  7. BISOPROLOL [Suspect]
     Active Substance: BISOPROLOL
     Indication: Product used for unknown indication
     Route: 065
  8. TACROLIMUS [Suspect]
     Active Substance: TACROLIMUS
     Indication: Prophylaxis against transplant rejection
     Route: 048
     Dates: start: 20180127, end: 20180130
  9. TACROLIMUS [Suspect]
     Active Substance: TACROLIMUS
     Indication: Renal transplant
     Dosage: 15 MG, BID
     Route: 048
  10. TACROLIMUS [Suspect]
     Active Substance: TACROLIMUS
     Route: 048
     Dates: start: 20180127
  11. TACROLIMUS [Suspect]
     Active Substance: TACROLIMUS
     Route: 048
     Dates: start: 20180128
  12. ENVARSUS XR [Suspect]
     Active Substance: TACROLIMUS
     Indication: Product used for unknown indication
  13. ENVARSUS XR [Suspect]
     Active Substance: TACROLIMUS
     Indication: Prophylaxis against transplant rejection
     Dosage: 3 MG, QD (1.5 MG, BID)
     Route: 048
     Dates: start: 20180127, end: 20180131
  14. ENVARSUS XR [Suspect]
     Active Substance: TACROLIMUS
     Indication: Renal transplant
  15. CEFUROXIME [Suspect]
     Active Substance: CEFUROXIME
     Indication: Product used for unknown indication
     Route: 065
  16. CEFUROXIME [Suspect]
     Active Substance: CEFUROXIME
     Route: 065
     Dates: start: 20180131
  17. NITROGLYCERIN [Suspect]
     Active Substance: NITROGLYCERIN
     Indication: Product used for unknown indication
     Route: 065
  18. OMEPRAZOLE [Suspect]
     Active Substance: OMEPRAZOLE
     Indication: Duodenal ulcer
     Route: 048
  19. HYDROCORTISONE [Suspect]
     Active Substance: HYDROCORTISONE
     Indication: Product used for unknown indication
     Route: 042
     Dates: start: 20180201
  20. HYDROCORTISONE [Suspect]
     Active Substance: HYDROCORTISONE
  21. ALFACALCIDOL [Suspect]
     Active Substance: ALFACALCIDOL
     Indication: Product used for unknown indication
     Route: 048
  22. ALFACALCIDOL [Suspect]
     Active Substance: ALFACALCIDOL
     Dosage: 500 NANOGRAM, QD
     Route: 048
  23. ALFACALCIDOL [Suspect]
     Active Substance: ALFACALCIDOL
     Route: 048
  24. DOXYCYCLINE [Suspect]
     Active Substance: DOXYCYCLINE
     Indication: Product used for unknown indication
     Route: 065
  25. SENNOSIDES A AND B [Suspect]
     Active Substance: SENNOSIDES A AND B
     Indication: Product used for unknown indication
  26. DEXTROSE [Suspect]
     Active Substance: DEXTROSE
     Indication: Product used for unknown indication
     Dates: start: 20180130
  27. NITROGLYCERIN [Suspect]
     Active Substance: NITROGLYCERIN
     Indication: Product used for unknown indication
  28. ALBUTEROL [Concomitant]
     Active Substance: ALBUTEROL
     Indication: Product used for unknown indication
  29. FUROSEMIDE [Concomitant]
     Active Substance: FUROSEMIDE
     Indication: Product used for unknown indication
     Route: 048
     Dates: end: 20180130
  30. FUROSEMIDE [Concomitant]
     Active Substance: FUROSEMIDE
     Route: 048
  31. FUROSEMIDE [Concomitant]
     Active Substance: FUROSEMIDE
     Dosage: 80MG MORNING, 40MG 12PM
     Route: 048
  32. BETAHISTINE [Concomitant]
     Active Substance: BETAHISTINE
     Indication: Product used for unknown indication
     Route: 048
  33. CHOLECALCIFEROL [Concomitant]
     Active Substance: CHOLECALCIFEROL
     Indication: Product used for unknown indication
     Route: 048
  34. EPLERENONE [Concomitant]
     Active Substance: EPLERENONE
     Indication: Product used for unknown indication
     Route: 048
  35. EPLERENONE [Concomitant]
     Active Substance: EPLERENONE
     Dosage: 25 MG, QMO
     Route: 048
  36. EPLERENONE [Concomitant]
     Active Substance: EPLERENONE
     Route: 048
     Dates: end: 20180130
  37. GLICLAZIDE [Concomitant]
     Active Substance: GLICLAZIDE
     Indication: Product used for unknown indication
     Route: 048
  38. PREDNISOLONE [Concomitant]
     Active Substance: PREDNISOLONE
     Indication: Product used for unknown indication
     Route: 048
     Dates: start: 20180127
  39. PREDNISOLONE [Concomitant]
     Active Substance: PREDNISOLONE
     Dosage: 5 MG, QMO MORNING
     Route: 048
     Dates: start: 20180127
  40. PREDNISOLONE [Concomitant]
     Active Substance: PREDNISOLONE
     Dosage: INCREASE PREDNISOLONE TO 10 MG FOR 5 DAYS
     Route: 048
     Dates: start: 20180127
  41. SENNA [Concomitant]
     Active Substance: SENNA LEAF\SENNOSIDES\SENNOSIDES A AND B
     Indication: Product used for unknown indication
     Route: 048
  42. NITROGLYCERIN [Concomitant]
     Active Substance: NITROGLYCERIN
     Indication: Product used for unknown indication
  43. DEXTROSE [Concomitant]
     Active Substance: DEXTROSE
     Indication: Product used for unknown indication
     Route: 065
     Dates: start: 20180130
  44. ALLOPURINOL [Concomitant]
     Active Substance: ALLOPURINOL
     Indication: Product used for unknown indication
     Route: 048
  45. GLUCAGON [Concomitant]
     Active Substance: GLUCAGON
     Indication: Product used for unknown indication
     Route: 030
     Dates: start: 20180130
  46. NITROGLYCERIN [Concomitant]
     Active Substance: NITROGLYCERIN
     Indication: Product used for unknown indication
     Route: 065
  47. HYDROCORTISONE [Concomitant]
     Active Substance: HYDROCORTISONE
     Indication: Product used for unknown indication
     Route: 042
     Dates: start: 20180201
  48. HYDROCORTISONE [Concomitant]
     Active Substance: HYDROCORTISONE
     Route: 042
     Dates: start: 20180201
  49. ALFACALCIDOL [Concomitant]
     Active Substance: ALFACALCIDOL
     Indication: Product used for unknown indication
     Dosage: 500 NANOGRAM DAILY; ALFACALCIDOL 500NG OD PO O/A
  50. ALFACALCIDOL [Concomitant]
     Active Substance: ALFACALCIDOL
     Dosage: 500 NANOGRAM, QD
     Route: 048
  51. ALFACALCIDOL [Concomitant]
     Active Substance: ALFACALCIDOL
     Route: 048
  52. DOXYCYCLINE [Concomitant]
     Active Substance: DOXYCYCLINE
     Indication: Product used for unknown indication

REACTIONS (34)
  - Acute kidney injury [Fatal]
  - Cardiac failure congestive [Fatal]
  - Oesophageal carcinoma [Fatal]
  - Pneumonia [Fatal]
  - Myocardial ischaemia [Fatal]
  - Immunosuppressant drug level increased [Fatal]
  - Drug interaction [Fatal]
  - Sepsis [Fatal]
  - Oesophageal perforation [Fatal]
  - Multimorbidity [Fatal]
  - Swelling [Fatal]
  - Toxicity to various agents [Fatal]
  - Drug level increased [Fatal]
  - Transplant failure [Fatal]
  - Hypoglycaemia [Fatal]
  - Soft tissue mass [Fatal]
  - Inflammatory marker increased [Fatal]
  - Rales [Fatal]
  - Superinfection [Fatal]
  - Lung consolidation [Fatal]
  - Productive cough [Fatal]
  - Dyspnoea [Fatal]
  - Dysphagia [Fatal]
  - Rash [Fatal]
  - Malaise [Fatal]
  - Labelled drug-drug interaction medication error [Fatal]
  - Cardiomegaly [Unknown]
  - Lower respiratory tract infection [Unknown]
  - Haemoptysis [Unknown]
  - Pleural effusion [Unknown]
  - Cough [Unknown]
  - Ascites [Unknown]
  - Renal impairment [Unknown]
  - Pyrexia [Unknown]

NARRATIVE: CASE EVENT DATE: 20180118
